FAERS Safety Report 7784183-1 (Version None)
Quarter: 2011Q3

REPORT INFORMATION
  Report Type: 
  Country: None (occurrence: None)
  Receive Date: 20110928
  Receipt Date: 20110915
  Transmission Date: 20111222
  Serious: Yes (Hospitalization, Other)
  Sender: FDA-Public Use
  Company Number: US-ELI_LILLY_AND_COMPANY-US201011002267

PATIENT
  Sex: Female

DRUGS (29)
  1. VITAMIN D [Concomitant]
  2. ZYRTEC [Concomitant]
  3. ZOCOR [Concomitant]
  4. EFFEXOR XR [Concomitant]
  5. FORTEO [Suspect]
     Dosage: 20 UG, DAILY (1/D)
  6. NIASPAN [Concomitant]
  7. NORCO [Concomitant]
  8. COD LIVER [Concomitant]
  9. NIACIN [Concomitant]
  10. CALCIUM CARBONATE + VITAMIN D [Concomitant]
  11. MULTI-VITAMIN [Concomitant]
  12. ZESTRIL [Concomitant]
  13. IMITREX [Concomitant]
     Dosage: UNK, AS NEEDED
  14. VICODIN [Concomitant]
  15. ULTRAM [Concomitant]
  16. VALIUM [Concomitant]
  17. FORTEO [Suspect]
     Indication: OSTEOPOROSIS
     Dosage: 20 UG, DAILY (1/D)
  18. FORTEO [Suspect]
     Dosage: 20 UG, QD
  19. COD-LIVER OIL [Concomitant]
  20. MACROBID [Concomitant]
  21. MACRODANTIN [Concomitant]
  22. POTASSIUM CITRATE [Concomitant]
  23. CENTRUM [Concomitant]
  24. ASPIRIN [Concomitant]
     Dosage: 81 MG, UNK
  25. VALTREX [Concomitant]
     Indication: HERPES ZOSTER
  26. LEBIC [Concomitant]
  27. STOOL SOFTENER [Concomitant]
  28. VITAMIN B COMPLEX CAP [Concomitant]
  29. MIRALAX [Concomitant]

REACTIONS (9)
  - SPINAL DISORDER [None]
  - NERVE COMPRESSION [None]
  - MUSCLE SPASMS [None]
  - EYE DISORDER [None]
  - PAIN [None]
  - INTERVERTEBRAL DISC DISORDER [None]
  - BIOPSY BREAST [None]
  - INAPPROPRIATE SCHEDULE OF DRUG ADMINISTRATION [None]
  - INGROWING NAIL [None]
